FAERS Safety Report 17629560 (Version 1)
Quarter: 2020Q2

REPORT INFORMATION
  Report Type: Spontaneous
  Country: US (occurrence: US)
  Receive Date: 20200406
  Receipt Date: 20200406
  Transmission Date: 20200713
  Serious: No
  Sender: FDA-Public Use
  Company Number: US-PFIZER INC-2020138311

PATIENT
  Age: 51 Year
  Sex: Female
  Weight: 93.42 kg

DRUGS (1)
  1. IBRANCE [Suspect]
     Active Substance: PALBOCICLIB
     Indication: BREAST CANCER
     Dosage: 100 MG (1 CAPSULE BY MOUTH DAILY WITH FOOD FOR 21 DAYS THEN 7 D)
     Route: 048
     Dates: start: 20200206

REACTIONS (6)
  - White blood cell count decreased [Unknown]
  - Breath sounds abnormal [Unknown]
  - Cough [Unknown]
  - Decreased appetite [Unknown]
  - Nausea [Unknown]
  - Dysphagia [Unknown]
